FAERS Safety Report 13203968 (Version 2)
Quarter: 2017Q2

REPORT INFORMATION
  Report Type: Spontaneous
  Country: US (occurrence: US)
  Receive Date: 20170209
  Receipt Date: 20170407
  Transmission Date: 20170830
  Serious: No
  Sender: FDA-Public Use
  Company Number: US-TEVA-737690ACC

PATIENT
  Age: 46 Year
  Sex: Female

DRUGS (5)
  1. CALCIUM [Concomitant]
     Active Substance: CALCIUM
  2. COPAXONE [Suspect]
     Active Substance: GLATIRAMER ACETATE
     Indication: MULTIPLE SCLEROSIS
     Route: 058
     Dates: start: 20160728
  3. GABAPENTIN. [Concomitant]
     Active Substance: GABAPENTIN
  4. MULTI VITAMIN [Concomitant]
     Active Substance: VITAMINS
  5. FLONASE [Concomitant]
     Active Substance: FLUTICASONE PROPIONATE

REACTIONS (8)
  - Injection site pain [Unknown]
  - Injection site pruritus [Unknown]
  - Injection site erythema [Unknown]
  - Mobility decreased [Unknown]
  - Injection site reaction [Unknown]
  - Dizziness [Unknown]
  - Wrong technique in product usage process [Unknown]
  - Drug administration error [Unknown]

NARRATIVE: CASE EVENT DATE: 201701
